FAERS Safety Report 20102749 (Version 6)
Quarter: 2022Q2

REPORT INFORMATION
  Report Type: Report from Study
  Country: CH (occurrence: BR)
  Receive Date: 20211123
  Receipt Date: 20220520
  Transmission Date: 20220721
  Serious: Yes (Hospitalization, Other)
  Sender: FDA-Public Use
  Company Number: CH-GLAXOSMITHKLINE-BR2021EME240067

PATIENT

DRUGS (1)
  1. TAFENOQUINE [Suspect]
     Active Substance: TAFENOQUINE
     Indication: Plasmodium vivax infection
     Dosage: UNK
     Dates: start: 20210930, end: 20210930

REACTIONS (4)
  - Contraindicated product administered [Unknown]
  - Chromaturia [Unknown]
  - Rhabdomyolysis [Recovered/Resolved]
  - Haemolytic anaemia [Recovered/Resolved]

NARRATIVE: CASE EVENT DATE: 20210929
